FAERS Safety Report 8817157 (Version 1)
Quarter: 2012Q4

REPORT INFORMATION
  Report Type: Spontaneous
  Country: DE (occurrence: None)
  Receive Date: 20121002
  Receipt Date: 20121002
  Transmission Date: 20130627
  Serious: Yes (Death, Life-Threatening, Hospitalization)
  Sender: FDA-Public Use
  Company Number: AUR-APL-2012-04141

PATIENT
  Age: 71 Year
  Sex: Female

DRUGS (6)
  1. METFORMIN (METFORMIN) [Suspect]
     Indication: TYPE 2 DIABETES MELLITUS
     Route: 048
  2. VERAPAMIL (VERAPAMIL) [Concomitant]
  3. METALCAPTASE (PENICILLAMINE) [Concomitant]
  4. NIFEDIPINE (NIFEDIPINE) [Concomitant]
  5. SYNTESTAN (CLOPREDNOL) [Concomitant]
  6. ALENDRONATE SODIUM (ALENDRONATE SODIUM) [Concomitant]

REACTIONS (6)
  - Lactic acidosis [None]
  - Renal failure acute [None]
  - Dyspnoea [None]
  - Haemodialysis [None]
  - Pneumonia [None]
  - Coma [None]
